FAERS Safety Report 21093092 (Version 2)
Quarter: 2022Q3

REPORT INFORMATION
  Report Type: Spontaneous
  Country: US (occurrence: None)
  Receive Date: 20220718
  Receipt Date: 20220813
  Transmission Date: 20221027
  Serious: No
  Sender: FDA-Public Use
  Company Number: 2022A246836

PATIENT
  Age: 24501 Day
  Sex: Male
  Weight: 104.3 kg

DRUGS (1)
  1. FASENRA [Suspect]
     Active Substance: BENRALIZUMAB
     Indication: Asthma
     Route: 058
     Dates: start: 20220702

REACTIONS (3)
  - Reflexes abnormal [Not Recovered/Not Resolved]
  - Device leakage [Unknown]
  - Device use error [Recovered/Resolved]

NARRATIVE: CASE EVENT DATE: 20220702
